FAERS Safety Report 6507876-2 (Version None)
Quarter: 2009Q4

REPORT INFORMATION
  Report Type: 
  Country: None (occurrence: None)
  Receive Date: 20091221
  Receipt Date: 20091217
  Transmission Date: 20100525
  Serious: Yes (Other)
  Sender: FDA-Public Use
  Company Number: A0835637A

PATIENT
  Sex: Female

DRUGS (2)
  1. FLOVENT [Suspect]
     Indication: ASTHMA
     Dosage: 2PUFF TWICE PER DAY
     Route: 055
  2. VENTOLIN [Concomitant]

REACTIONS (5)
  - ABDOMINAL PAIN [None]
  - ASTHMA [None]
  - CHEST PAIN [None]
  - DIZZINESS [None]
  - INHALATION THERAPY [None]
